FAERS Safety Report 11785739 (Version 1)
Quarter: 2015Q4

REPORT INFORMATION
  Report Type: Spontaneous
  Country: US (occurrence: US)
  Receive Date: 20151130
  Receipt Date: 20151130
  Transmission Date: 20160305
  Serious: Yes (Death)
  Sender: FDA-Public Use
  Company Number: US-PFIZER INC-2015393883

PATIENT
  Sex: Male

DRUGS (1)
  1. NEUMEGA [Suspect]
     Active Substance: OPRELVEKIN
     Dosage: UNK

REACTIONS (1)
  - Death [Fatal]
